FAERS Safety Report 16976747 (Version 1)
Quarter: 2019Q4

REPORT INFORMATION
  Report Type: Spontaneous
  Country: GB (occurrence: GB)
  Receive Date: 20191030
  Receipt Date: 20191030
  Transmission Date: 20200122
  Serious: Yes (Other)
  Sender: FDA-Public Use
  Company Number: GB-PFIZER INC-2019467232

PATIENT
  Age: 72 Year
  Sex: Female

DRUGS (1)
  1. SERTRALINE HCL [Suspect]
     Active Substance: SERTRALINE HYDROCHLORIDE
     Indication: DEPRESSION
     Dosage: 100 MG, DAILY
     Route: 048
     Dates: start: 20190902, end: 20190903

REACTIONS (5)
  - Vomiting [Unknown]
  - Tremor [Unknown]
  - Diarrhoea [Unknown]
  - Serotonin syndrome [Unknown]
  - Pain [Unknown]

NARRATIVE: CASE EVENT DATE: 20190902
